FAERS Safety Report 11835208 (Version 1)
Quarter: 2015Q4

REPORT INFORMATION
  Report Type: Spontaneous
  Country: FR (occurrence: FR)
  Receive Date: 20151215
  Receipt Date: 20151215
  Transmission Date: 20160305
  Serious: Yes (Hospitalization)
  Sender: FDA-Public Use
  Company Number: FR-AUROBINDO-AUR-APL-2015-11265

PATIENT
  Age: 75 Year
  Sex: Male

DRUGS (2)
  1. BRILIQUE [Suspect]
     Active Substance: TICAGRELOR
     Indication: MYOCARDIAL ISCHAEMIA
     Dosage: 90 MG, TWO TIMES A DAY
     Route: 048
     Dates: start: 20151018
  2. ATENOLOL ARROW 50 MG [Suspect]
     Active Substance: ATENOLOL
     Indication: MYOCARDIAL ISCHAEMIA
     Dosage: 50 MG, DAILY
     Route: 048
     Dates: start: 20151018, end: 20151018

REACTIONS (2)
  - Atrioventricular block complete [Recovered/Resolved with Sequelae]
  - Atrioventricular block second degree [Recovered/Resolved with Sequelae]

NARRATIVE: CASE EVENT DATE: 20151018
